FAERS Safety Report 17439963 (Version 1)
Quarter: 2020Q1

REPORT INFORMATION
  Report Type: Spontaneous
  Country: US (occurrence: US)
  Receive Date: 20200219
  Receipt Date: 20200219
  Transmission Date: 20200409
  Serious: No
  Sender: FDA-Public Use
  Company Number: None

PATIENT
  Age: 46 Year
  Sex: Female

DRUGS (1)
  1. LOVENOX [Suspect]
     Active Substance: ENOXAPARIN SODIUM
     Indication: EMBOLISM
     Route: 058
     Dates: start: 2018

REACTIONS (4)
  - Burning sensation [None]
  - Headache [None]
  - Product substitution issue [None]
  - Post procedural complication [None]

NARRATIVE: CASE EVENT DATE: 20200219
